FAERS Safety Report 21356858 (Version 1)
Quarter: 2022Q3

REPORT INFORMATION
  Report Type: Spontaneous
  Country: FR (occurrence: FR)
  Receive Date: 20220920
  Receipt Date: 20220920
  Transmission Date: 20221026
  Serious: Yes (Hospitalization)
  Sender: FDA-Public Use
  Company Number: FR-AFSSAPS-NC20222707

PATIENT
  Age: 27 Year
  Sex: Male
  Weight: 75 kg

DRUGS (2)
  1. ACETAMINOPHEN [Suspect]
     Active Substance: ACETAMINOPHEN
     Indication: Toothache
     Dosage: 20 GRAM,, IN TOTAL, 1 TABLET EVERY 15-20 MIN --} 20 TABLETS OF 1G IN TOTAL, I.E. 20 G OF PARACETAMOL
     Route: 048
     Dates: start: 20220713, end: 20220714
  2. IBUPROFEN [Suspect]
     Active Substance: IBUPROFEN
     Indication: Toothache
     Dosage: 2.8 GRAM, IN TOTAL, 7 TABLETS OF 400 MG IN TOTAL, I.E. 2.8 G OF IBUPROFEN
     Route: 048
     Dates: start: 20220713, end: 20220714

REACTIONS (7)
  - Hepatic cytolysis [Recovering/Resolving]
  - Nausea [Recovered/Resolved]
  - Overdose [Recovered/Resolved]
  - Malaise [Recovered/Resolved]
  - Incorrect dosage administered [Recovered/Resolved]
  - Abdominal pain [Recovered/Resolved]
  - Vomiting [Recovered/Resolved]

NARRATIVE: CASE EVENT DATE: 20220713
